FAERS Safety Report 13009565 (Version 1)
Quarter: 2016Q4

REPORT INFORMATION
  Report Type: Spontaneous
  Country: BE (occurrence: BE)
  Receive Date: 20161208
  Receipt Date: 20161208
  Transmission Date: 20170207
  Serious: Yes (Hospitalization, Other)
  Sender: FDA-Public Use
  Company Number: BE-ABBVIE-16P-013-1797341-00

PATIENT
  Age: 34 Year
  Sex: Male
  Weight: 79 kg

DRUGS (1)
  1. SEVOFLURANE. [Suspect]
     Active Substance: SEVOFLURANE
     Indication: SEDATION
     Route: 055
     Dates: start: 2015, end: 2015

REACTIONS (1)
  - Nephrogenic diabetes insipidus [Recovered/Resolved]

NARRATIVE: CASE EVENT DATE: 2015
